FAERS Safety Report 9637507 (Version 1)
Quarter: 2013Q4

REPORT INFORMATION
  Report Type: Spontaneous
  Country: FR (occurrence: FR)
  Receive Date: 20131022
  Receipt Date: 20131022
  Transmission Date: 20140711
  Serious: Yes (Other)
  Sender: FDA-Public Use
  Company Number: FR-JNJFOC-20131011083

PATIENT
  Age: 84 Year
  Sex: Male

DRUGS (6)
  1. XARELTO [Suspect]
     Indication: PRODUCT USED FOR UNKNOWN INDICATION
     Route: 048
  2. XARELTO [Suspect]
     Indication: PRODUCT USED FOR UNKNOWN INDICATION
     Route: 048
     Dates: start: 20130613
  3. ASPEGIC [Suspect]
     Indication: PRODUCT USED FOR UNKNOWN INDICATION
     Route: 048
  4. INEXIUM [Concomitant]
     Route: 065
     Dates: start: 201205
  5. BISOPROLOL [Concomitant]
     Route: 065
     Dates: start: 201205
  6. TRIATEC [Concomitant]
     Route: 065
     Dates: start: 201205

REACTIONS (2)
  - Post procedural haemorrhage [Recovered/Resolved]
  - Condition aggravated [Recovered/Resolved]
